FAERS Safety Report 26130249 (Version 1)
Quarter: 2025Q4

REPORT INFORMATION
  Report Type: Spontaneous
  Country: CN (occurrence: CN)
  Receive Date: 20251208
  Receipt Date: 20251208
  Transmission Date: 20260117
  Serious: Yes (Other)
  Sender: TEVA
  Company Number: CN-TEVA-VS-3400399

PATIENT
  Age: 82 Year
  Sex: Female
  Weight: 52 kg

DRUGS (7)
  1. BENDAMUSTINE [Suspect]
     Active Substance: BENDAMUSTINE
     Indication: Diffuse large B-cell lymphoma stage III
     Route: 065
     Dates: start: 202502
  2. VINCRISTINE [Concomitant]
     Active Substance: VINCRISTINE
     Indication: Diffuse large B-cell lymphoma stage III
     Dosage: SIX 21-DAY CYCLES
     Route: 065
     Dates: start: 20230401
  3. CYCLOPHOSPHAMIDE [Suspect]
     Active Substance: CYCLOPHOSPHAMIDE
     Indication: Diffuse large B-cell lymphoma stage III
     Dosage: DISCONTINUATION IN CYCLES 5-6
     Route: 065
     Dates: start: 20230401
  4. RITUXIMAB [Suspect]
     Active Substance: RITUXIMAB
     Indication: Diffuse large B-cell lymphoma stage III
     Dosage: SIX 21-DAY CYCLES
     Route: 065
     Dates: start: 20230401
  5. RITUXIMAB [Suspect]
     Active Substance: RITUXIMAB
     Indication: Diffuse large B-cell lymphoma stage III
     Route: 065
     Dates: start: 202502
  6. MITOXANTRONE HYDROCHLORIDE [Concomitant]
     Active Substance: MITOXANTRONE HYDROCHLORIDE
     Indication: Diffuse large B-cell lymphoma stage III
     Dosage: SIX 21-DAY CYCLES
     Route: 065
     Dates: start: 20230401
  7. POLATUZUMAB VEDOTIN [Suspect]
     Active Substance: POLATUZUMAB VEDOTIN
     Indication: Diffuse large B-cell lymphoma stage III
     Route: 065
     Dates: start: 202502

REACTIONS (6)
  - Anaemia [Recovered/Resolved]
  - Pyrexia [Recovered/Resolved]
  - Myelosuppression [Recovered/Resolved]
  - Drug ineffective [Unknown]
  - Neutropenia [Recovered/Resolved]
  - Gastrointestinal disorder [Recovered/Resolved]

NARRATIVE: CASE EVENT DATE: 20230101
